FAERS Safety Report 26140086 (Version 3)
Quarter: 2025Q4

REPORT INFORMATION
  Report Type: Report from Study
  Country: US (occurrence: US)
  Receive Date: 20251210
  Receipt Date: 20251231
  Transmission Date: 20260117
  Serious: Yes (Hospitalization)
  Sender: BAYER HEALTHCARE PHARMACEUTICALS INC.
  Company Number: US-BAYER-2025A162033

PATIENT
  Age: 84 Year
  Sex: Female
  Weight: 56.236 kg

DRUGS (20)
  1. ADEMPAS [Suspect]
     Active Substance: RIOCIGUAT
     Indication: Pulmonary arterial hypertension
     Dosage: UNK
     Dates: start: 20250912
  2. ADEMPAS [Suspect]
     Active Substance: RIOCIGUAT
     Indication: Pulmonary arterial hypertension
     Dosage: 2.5 MG, TID
     Route: 048
     Dates: start: 2025
  3. ACETAMINOPHEN [Concomitant]
     Active Substance: ACETAMINOPHEN
  4. PROTONIX [Concomitant]
     Active Substance: PANTOPRAZOLE SODIUM
  5. JARDIANCE [Concomitant]
     Active Substance: EMPAGLIFLOZIN
  6. ALBUTEROL SULFATE [Concomitant]
     Active Substance: ALBUTEROL SULFATE
  7. ELIQUIS [Concomitant]
     Active Substance: APIXABAN
  8. ALENDRONATE SODIUM [Concomitant]
     Active Substance: ALENDRONATE SODIUM
  9. FLUTICASONE PROPIONATE [Concomitant]
     Active Substance: FLUTICASONE PROPIONATE
  10. VITAMINS [Concomitant]
     Active Substance: VITAMINS
  11. HYDROXYUREA [Concomitant]
     Active Substance: HYDROXYUREA
  12. CALCIUM [Concomitant]
     Active Substance: CALCIUM
  13. CLOBETASOL [Concomitant]
     Active Substance: CLOBETASOL
  14. SPIRONOLACTONE [Concomitant]
     Active Substance: SPIRONOLACTONE
  15. FUROSEMIDE [Concomitant]
     Active Substance: FUROSEMIDE
  16. TRAZODONE HCL [Concomitant]
     Active Substance: TRAZODONE HYDROCHLORIDE
  17. LORATADINE [Concomitant]
     Active Substance: LORATADINE
  18. MIDODRINE HYDROCHLORIDE [Concomitant]
     Active Substance: MIDODRINE HYDROCHLORIDE
  19. ALLOPURINOL [Concomitant]
     Active Substance: ALLOPURINOL
  20. SENNA PLUS [Concomitant]
     Active Substance: DOCUSATE SODIUM\SENNOSIDES\SENNOSIDES A AND B

REACTIONS (7)
  - Blood pressure abnormal [None]
  - Cardiac ablation [None]
  - Fluid retention [None]
  - Pulmonary angioplasty [None]
  - Thrombosis [None]
  - Gout [None]
  - Renal disorder [None]

NARRATIVE: CASE EVENT DATE: 20250101
